FAERS Safety Report 12090220 (Version 1)
Quarter: 2016Q1

REPORT INFORMATION
  Report Type: Report from Study
  Country: ES (occurrence: ES)
  Receive Date: 20160218
  Receipt Date: 20160218
  Transmission Date: 20160526
  Serious: Yes (Other)
  Sender: FDA-Public Use
  Company Number: ES-BRISTOL-MYERS SQUIBB COMPANY-13499009

PATIENT
  Sex: Female

DRUGS (3)
  1. MYCOPHENOLATE MOFETIL. [Concomitant]
     Active Substance: MYCOPHENOLATE MOFETIL
     Indication: PRODUCT USED FOR UNKNOWN INDICATION
     Dosage: UNK
     Route: 050
     Dates: start: 20020728
  2. BELATACEPT [Suspect]
     Active Substance: BELATACEPT
     Indication: PRODUCT USED FOR UNKNOWN INDICATION
     Dosage: 315 MG, Q8WK
     Route: 050
     Dates: start: 20020728
  3. PREDNISONE. [Concomitant]
     Active Substance: PREDNISONE
     Indication: PRODUCT USED FOR UNKNOWN INDICATION
     Dosage: UNK
     Route: 050
     Dates: start: 20020728

REACTIONS (2)
  - Exposure via body fluid [Unknown]
  - Abortion spontaneous [Unknown]
